FAERS Safety Report 15836605 (Version 1)
Quarter: 2019Q1

REPORT INFORMATION
  Report Type: Spontaneous
  Country: CN (occurrence: CN)
  Receive Date: 20190117
  Receipt Date: 20190117
  Transmission Date: 20190417
  Serious: Yes (Other)
  Sender: FDA-Public Use
  Company Number: CN-ROCHE-2242709

PATIENT
  Age: 34 Year
  Sex: Female

DRUGS (15)
  1. GEMCITABINE [Concomitant]
     Active Substance: GEMCITABINE\GEMCITABINE HYDROCHLORIDE
     Indication: OVARIAN GERM CELL TUMOUR MIXED
     Route: 065
     Dates: start: 20170705
  2. DOCETAXEL. [Suspect]
     Active Substance: DOCETAXEL
     Route: 065
     Dates: start: 20170705
  3. BLEOMYCIN [Suspect]
     Active Substance: BLEOMYCIN SULFATE
     Indication: OVARIAN GERM CELL TUMOUR MIXED
     Route: 065
  4. FUDR [Suspect]
     Active Substance: FLOXURIDINE
     Indication: OVARIAN GERM CELL TUMOUR MIXED
     Route: 065
  5. PACLITAXEL. [Suspect]
     Active Substance: PACLITAXEL
     Indication: OVARIAN GERM CELL TUMOUR MIXED
     Route: 065
  6. METHOTREXATE. [Suspect]
     Active Substance: METHOTREXATE
     Indication: OVARIAN GERM CELL TUMOUR MIXED
     Route: 065
  7. CYCLOPHOSPHAMIDE. [Suspect]
     Active Substance: CYCLOPHOSPHAMIDE
     Indication: OVARIAN GERM CELL TUMOUR MIXED
     Route: 065
  8. IFOSFAMIDE. [Suspect]
     Active Substance: IFOSFAMIDE
     Indication: OVARIAN GERM CELL TUMOUR MIXED
     Route: 065
  9. ICOTINIB [Suspect]
     Active Substance: ICOTINIB
     Indication: OVARIAN GERM CELL TUMOUR MIXED
     Route: 065
  10. CISPLATIN. [Suspect]
     Active Substance: CISPLATIN
     Indication: OVARIAN GERM CELL TUMOUR MIXED
     Route: 065
  11. ACTINOMYCIN D [Suspect]
     Active Substance: DACTINOMYCIN
     Indication: OVARIAN GERM CELL TUMOUR MIXED
     Route: 065
  12. DOCETAXEL. [Suspect]
     Active Substance: DOCETAXEL
     Indication: OVARIAN GERM CELL TUMOUR MIXED
     Route: 065
  13. VINCRISTINE [Suspect]
     Active Substance: VINCRISTINE
     Indication: OVARIAN GERM CELL TUMOUR MIXED
     Route: 065
  14. BEVACIZUMAB. [Suspect]
     Active Substance: BEVACIZUMAB
     Indication: OVARIAN GERM CELL TUMOUR MIXED
     Route: 065
  15. ETOPOSIDE. [Suspect]
     Active Substance: ETOPOSIDE
     Indication: OVARIAN GERM CELL TUMOUR MIXED
     Route: 065

REACTIONS (4)
  - Renal impairment [Unknown]
  - Fatigue [Unknown]
  - Neurotoxicity [Unknown]
  - Bone marrow failure [Unknown]
